FAERS Safety Report 17879277 (Version 1)
Quarter: 2020Q2

REPORT INFORMATION
  Report Type: Report from Study
  Country: US (occurrence: US)
  Receive Date: 20200610
  Receipt Date: 20200610
  Transmission Date: 20200714
  Serious: Yes (Hospitalization)
  Sender: FDA-Public Use
  Company Number: US-EMD SERONO-9070928

PATIENT
  Age: 42 Year
  Sex: Female

DRUGS (3)
  1. GABAPENTIN. [Concomitant]
     Active Substance: GABAPENTIN
     Indication: PRODUCT USED FOR UNKNOWN INDICATION
  2. REBIF [Suspect]
     Active Substance: INTERFERON BETA-1A
     Route: 058
     Dates: start: 2016
  3. REBIF [Suspect]
     Active Substance: INTERFERON BETA-1A
     Indication: MULTIPLE SCLEROSIS
     Route: 058
     Dates: start: 20150902

REACTIONS (15)
  - Hepatic enzyme increased [Unknown]
  - Hepatic cirrhosis [Recovering/Resolving]
  - Pain in extremity [Unknown]
  - Night sweats [Unknown]
  - Multiple sclerosis [Not Recovered/Not Resolved]
  - Muscle atrophy [Recovering/Resolving]
  - Burning sensation [Unknown]
  - Injection site pain [Unknown]
  - Injection site bruising [Unknown]
  - Injection site indentation [Unknown]
  - Blood urine present [Recovering/Resolving]
  - Lower gastrointestinal haemorrhage [Recovering/Resolving]
  - Musculoskeletal stiffness [Unknown]
  - Abdominal distension [Recovering/Resolving]
  - Wrong technique in product usage process [Unknown]

NARRATIVE: CASE EVENT DATE: 201901
